FAERS Safety Report 10239995 (Version 1)
Quarter: 2014Q2

REPORT INFORMATION
  Report Type: Spontaneous
  Country: IT (occurrence: IT)
  Receive Date: 20140616
  Receipt Date: 20140616
  Transmission Date: 20141212
  Serious: Yes (Life-Threatening)
  Sender: FDA-Public Use
  Company Number: IT-MYLANLABS-2014S1013244

PATIENT
  Age: 78 Year
  Sex: Male

DRUGS (1)
  1. CLOPIDOGREL [Suspect]
     Indication: ARTERIOSCLEROSIS
     Route: 048
     Dates: start: 20140410, end: 20140420

REACTIONS (3)
  - Dermatitis allergic [Recovered/Resolved]
  - Dyspepsia [Recovered/Resolved]
  - Vertigo [Recovered/Resolved]
